FAERS Safety Report 4289229-3 (Version None)
Quarter: 2004Q1

REPORT INFORMATION
  Report Type: 
  Country: None (occurrence: None)
  Receive Date: 20040203
  Receipt Date: 20000209
  Transmission Date: 20041129
  Serious: Yes (Other)
  Sender: FDA-Public Use
  Company Number: 2000-011

PATIENT
  Age: 21 Year
  Sex: Female
  Weight: 45.3597 kg

DRUGS (2)
  1. DORYX [Suspect]
     Indication: ACNE
     Dosage: 100 MG QD ORAL
     Route: 048
     Dates: start: 20000204, end: 20000209
  2. ZOLOFT [Concomitant]

REACTIONS (1)
  - HEADACHE [None]
